FAERS Safety Report 5706383-4 (Version None)
Quarter: 2008Q2

REPORT INFORMATION
  Report Type: 
  Country: None (occurrence: None)
  Receive Date: 20080411
  Receipt Date: 20080327
  Transmission Date: 20081010
  Serious: Yes (Death)
  Sender: FDA-Public Use
  Company Number: 2008S1005163

PATIENT
  Age: 19 Year
  Sex: Male

DRUGS (9)
  1. NIFEDIPINE [Suspect]
     Indication: DRUG USE FOR UNKNOWN INDICATION
     Dosage: 15 MG;3 TIMES A DAY;
  2. OMEPRAZOLE [Suspect]
     Indication: DRUG USE FOR UNKNOWN INDICATION
     Dosage: 40 MG;DAILY
  3. VALLERGAN (ALIMEMAZINE TARTRATE) [Suspect]
     Indication: DRUG USE FOR UNKNOWN INDICATION
  4. ATROVENT [Concomitant]
  5. DOMPERIDONE [Concomitant]
  6. FLIXOTIDE [Concomitant]
  7. GAVISCON [Concomitant]
  8. SEREVENT [Concomitant]
  9. VENTOLIN [Concomitant]

REACTIONS (3)
  - HAEMOLYSIS [None]
  - IDIOPATHIC THROMBOCYTOPENIC PURPURA [None]
  - MALAISE [None]
